FAERS Safety Report 7233202-X (Version None)
Quarter: 2011Q1

REPORT INFORMATION
  Report Type: 
  Country: None (occurrence: None)
  Receive Date: 20110119
  Receipt Date: 20110114
  Transmission Date: 20110831
  Serious: Yes (Other)
  Sender: FDA-Public Use
  Company Number: A0906291A

PATIENT
  Sex: Female

DRUGS (1)
  1. TYKERB [Suspect]
     Dosage: 1000MGD PER DAY
     Route: 048
     Dates: start: 20110108, end: 20110113

REACTIONS (6)
  - DRY SKIN [None]
  - LIVER FUNCTION TEST ABNORMAL [None]
  - DECREASED APPETITE [None]
  - NAUSEA [None]
  - NERVOUSNESS [None]
  - PRURITUS [None]
